FAERS Safety Report 6823094-2 (Version None)
Quarter: 2010Q3

REPORT INFORMATION
  Report Type: 
  Country: None (occurrence: None)
  Receive Date: 20100708
  Receipt Date: 20100623
  Transmission Date: 20110219
  Serious: Yes (Other)
  Sender: FDA-Public Use
  Company Number: AT-MERCK-1005AUT00004

PATIENT
  Sex: Female

DRUGS (4)
  1. ZIDOVUDINE [Suspect]
     Route: 048
  2. DARUNAVIR [Suspect]
     Route: 048
  3. RITONAVIR [Suspect]
     Route: 048
  4. ISENTRESS [Suspect]
     Route: 048

REACTIONS (2)
  - COMPLICATION OF DELIVERY [None]
  - DRUG EXPOSURE DURING PREGNANCY [None]
